FAERS Safety Report 8246217-X (Version None)
Quarter: 2012Q1

REPORT INFORMATION
  Report Type: 
  Country: None (occurrence: None)
  Receive Date: 20120330
  Receipt Date: 20120321
  Transmission Date: 20120608
  Serious: Yes (Death, Life-Threatening)
  Sender: FDA-Public Use
  Company Number: US-BAYER-2012-029498

PATIENT
  Age: 75 Year
  Sex: Female

DRUGS (1)
  1. APROTININ [Suspect]
     Indication: AORTIC ANEURYSM REPAIR

REACTIONS (6)
  - RENAL IMPAIRMENT [None]
  - DISSEMINATED INTRAVASCULAR COAGULATION [None]
  - RENAL EMBOLISM [None]
  - ACUTE MYOCARDIAL INFARCTION [None]
  - MITRAL VALVE INCOMPETENCE [None]
  - INTRACARDIAC THROMBUS [None]
